FAERS Safety Report 6564451-1 (Version None)
Quarter: 2010Q1

REPORT INFORMATION
  Report Type: 
  Country: None (occurrence: None)
  Receive Date: 20100201
  Receipt Date: 20100122
  Transmission Date: 20100710
  Serious: Yes (Other)
  Sender: FDA-Public Use
  Company Number: US-RB-001673-10

PATIENT
  Age: 65 Year
  Sex: Female

DRUGS (1)
  1. DELSYM ADULT COUGH SYRUP [Suspect]
     Route: 048
     Dates: start: 20100120

REACTIONS (5)
  - DIZZINESS [None]
  - EXPIRED DRUG ADMINISTERED [None]
  - HYPERTENSION [None]
  - INSOMNIA [None]
  - NERVOUSNESS [None]
